FAERS Safety Report 4286120-3 (Version None)
Quarter: 2004Q1

REPORT INFORMATION
  Report Type: 
  Country: None (occurrence: None)
  Receive Date: 20040204
  Receipt Date: 20040204
  Transmission Date: 20041129
  Serious: No
  Sender: FDA-Public Use
  Company Number: None

PATIENT
  Sex: Male

DRUGS (1)
  1. LISINOPRIL [Suspect]
     Dosage: 2.5NG QD ORAL
     Route: 048
     Dates: start: 20031023, end: 20031110

REACTIONS (4)
  - ASTHENIA [None]
  - BLOOD CREATININE INCREASED [None]
  - BLOOD UREA INCREASED [None]
  - FATIGUE [None]
